FAERS Safety Report 6498381-0 (Version None)
Quarter: 2009Q4

REPORT INFORMATION
  Report Type: 
  Country: None (occurrence: None)
  Receive Date: 20091127
  Receipt Date: 20090828
  Transmission Date: 20100525
  Serious: Yes (Other)
  Sender: FDA-Public Use
  Company Number: 291205

PATIENT
  Age: 67 Year
  Sex: Female
  Weight: 113.4 kg

DRUGS (12)
  1. NOVOLOG [Suspect]
     Indication: INSULIN-REQUIRING TYPE 2 DIABETES MELLITUS
     Dosage: QD SLIDING SCALE, SUBCUTANEOUS
     Route: 058
     Dates: start: 20040101
  2. VENTILAN (SALBUTAMOL) [Concomitant]
  3. AMLODIPINE [Concomitant]
  4. ATENOLOL [Concomitant]
  5. BENADRYL [Concomitant]
  6. FERROUS GLUCONATE (FERROUS GLUCONATE) [Concomitant]
  7. FUROSEMIDE [Concomitant]
  8. VYTORIN [Concomitant]
  9. PRILOSEC [Concomitant]
  10. PROPOXYPHENE HCL [Concomitant]
  11. GLYBURIDE [Concomitant]
  12. LANTUS [Concomitant]

REACTIONS (2)
  - HYPOGLYCAEMIC UNCONSCIOUSNESS [None]
  - INCORRECT DOSE ADMINISTERED [None]
